FAERS Safety Report 26072863 (Version 4)
Quarter: 2025Q4

REPORT INFORMATION
  Report Type: Report from Study
  Country: US (occurrence: US)
  Receive Date: 20251121
  Receipt Date: 20251208
  Transmission Date: 20260118
  Serious: Yes (Hospitalization, Disabling, Other)
  Sender: ABBVIE
  Company Number: US-ABBVIE-6552462

PATIENT
  Age: 57 Year
  Sex: Male

DRUGS (12)
  1. SKYRIZI [Suspect]
     Active Substance: RISANKIZUMAB-RZAA
     Indication: Psoriasis
     Route: 058
     Dates: start: 20201101, end: 20220430
  2. SKYRIZI [Suspect]
     Active Substance: RISANKIZUMAB-RZAA
     Route: 058
     Dates: start: 20230316
  3. AMLODIPINE [Concomitant]
     Active Substance: AMLODIPINE BESYLATE
     Indication: Blood pressure measurement
  4. SPIRIVA [Concomitant]
     Active Substance: TIOTROPIUM BROMIDE MONOHYDRATE
     Indication: Asthma
  5. TYLENOL [Concomitant]
     Active Substance: ACETAMINOPHEN
     Indication: Pain
  6. ASPIRIN [Concomitant]
     Active Substance: ASPIRIN
     Indication: Pain
  7. VOLTAREN [Concomitant]
     Active Substance: DICLOFENAC SODIUM
     Indication: Pain
  8. TIZANIDINE [Concomitant]
     Active Substance: TIZANIDINE
     Indication: Muscle relaxant therapy
  9. ACETAMINOPHEN\CAFFEINE\CODEINE PHOSPHATE [Concomitant]
     Active Substance: ACETAMINOPHEN\CAFFEINE\CODEINE PHOSPHATE
     Indication: Muscle relaxant therapy
  10. GABAPENTIN [Concomitant]
     Active Substance: GABAPENTIN
     Indication: Neuralgia
  11. OXYCODONE [Suspect]
     Active Substance: OXYCODONE
     Indication: Product used for unknown indication
     Route: 065
  12. ALBUTEROL [Concomitant]
     Active Substance: ALBUTEROL
     Indication: Asthma

REACTIONS (25)
  - Road traffic accident [Recovering/Resolving]
  - Arthralgia [Not Recovered/Not Resolved]
  - Headache [Unknown]
  - Concussion [Unknown]
  - Spinal fracture [Unknown]
  - Dysgraphia [Not Recovered/Not Resolved]
  - General physical health deterioration [Unknown]
  - Psoriatic arthropathy [Unknown]
  - Cervical vertebral fracture [Unknown]
  - Back pain [Recovering/Resolving]
  - Road traffic accident [Recovered/Resolved]
  - Nerve injury [Not Recovered/Not Resolved]
  - Hypoaesthesia [Not Recovered/Not Resolved]
  - Arthralgia [Recovering/Resolving]
  - Spinal pain [Unknown]
  - Arthritis [Recovering/Resolving]
  - Constipation [Unknown]
  - Pain [Unknown]
  - Arthralgia [Unknown]
  - Upper limb fracture [Unknown]
  - Unevaluable event [Not Recovered/Not Resolved]
  - Psoriasis [Recovering/Resolving]
  - Cervical vertebral fracture [Recovering/Resolving]
  - Brain injury [Unknown]
  - Face injury [Recovering/Resolving]

NARRATIVE: CASE EVENT DATE: 20220101
